FAERS Safety Report 21857568 (Version 2)
Quarter: 2023Q1

REPORT INFORMATION
  Report Type: Report from Study
  Country: MX (occurrence: MX)
  Receive Date: 20230113
  Receipt Date: 20230118
  Transmission Date: 20230417
  Serious: Yes (Life-Threatening)
  Sender: FDA-Public Use
  Company Number: MX-JNJFOC-20230122866

PATIENT
  Age: 55 Year
  Sex: Female
  Weight: 71 kg

DRUGS (2)
  1. ESKETAMINE [Suspect]
     Active Substance: ESKETAMINE
     Indication: Major depression
     Dosage: MED KIT NUMBER : 787785, 787786, 787787 (28 MG SPRAYS AT 12:30, 12:35 AND 12:40)
     Dates: start: 20180314, end: 20221205
  2. ESKETAMINE [Suspect]
     Active Substance: ESKETAMINE
     Dosage: MED KIT NUMBER 787834 (AT 12:10)
     Dates: start: 20221215

REACTIONS (1)
  - Suicidal ideation [Not Recovered/Not Resolved]

NARRATIVE: CASE EVENT DATE: 20221212
